FAERS Safety Report 4450690-2 (Version None)
Quarter: 2004Q3

REPORT INFORMATION
  Report Type: 
  Country: None (occurrence: None)
  Receive Date: 20040915
  Receipt Date: 20040915
  Transmission Date: 20050211
  Serious: Yes (Other)
  Sender: FDA-Public Use
  Company Number: None

PATIENT
  Age: 38 Year
  Sex: Female
  Weight: 56.6996 kg

DRUGS (5)
  1. FORTOVASE [Suspect]
     Indication: HIV TEST POSITIVE
     Dosage: 1200 MG   TID   ORAL
     Route: 048
     Dates: start: 19971215, end: 20040914
  2. VIRACEPT [Concomitant]
  3. RESCRIPTOR [Concomitant]
  4. EPIVIR [Concomitant]
  5. RETROVIR [Concomitant]

REACTIONS (3)
  - DYSPEPSIA [None]
  - GASTROINTESTINAL DISORDER [None]
  - PHARMACEUTICAL PRODUCT COMPLAINT [None]
